FAERS Safety Report 6498795-9 (Version None)
Quarter: 2009Q4

REPORT INFORMATION
  Report Type: 
  Country: None (occurrence: None)
  Receive Date: 20091215
  Receipt Date: 20091204
  Transmission Date: 20100525
  Serious: Yes (Hospitalization)
  Sender: FDA-Public Use
  Company Number: US-JNJFOC-20091202098

PATIENT
  Age: 11 Year
  Sex: Male
  Weight: 30.84 kg

DRUGS (4)
  1. INFLIXIMAB [Suspect]
     Route: 042
     Dates: start: 20040525, end: 20091006
  2. INFLIXIMAB [Suspect]
     Indication: INFLAMMATORY BOWEL DISEASE
     Route: 042
     Dates: start: 20040525, end: 20091006
  3. AMINOSALYLUM [Concomitant]
     Indication: INFLAMMATORY BOWEL DISEASE
  4. IMMUNOMODULATORS [Concomitant]
     Indication: INFLAMMATORY BOWEL DISEASE

REACTIONS (2)
  - ESCHERICHIA URINARY TRACT INFECTION [None]
  - STAPHYLOCOCCAL INFECTION [None]
